FAERS Safety Report 8021930-8 (Version None)
Quarter: 2011Q4

REPORT INFORMATION
  Report Type: 
  Country: None (occurrence: None)
  Receive Date: 20111230
  Receipt Date: 20111220
  Transmission Date: 20120403
  Serious: Yes (Death)
  Sender: FDA-Public Use
  Company Number: DSA_48145_2011

PATIENT
  Sex: Male

DRUGS (7)
  1. DEPAKOTE [Concomitant]
  2. TRAMADOL HCL [Concomitant]
  3. FLONASE [Concomitant]
  4. SEROQUEL [Concomitant]
  5. REMERON [Concomitant]
  6. TRAZODONE HCL [Concomitant]
  7. XENAZINE [Suspect]
     Indication: PRODUCT USED FOR UNKNOWN INDICATION
     Dosage: 25 MG BID, ORAL
     Route: 048

REACTIONS (1)
  - DEATH [None]
